FAERS Safety Report 7960586-7 (Version None)
Quarter: 2011Q4

REPORT INFORMATION
  Report Type: 
  Country: None (occurrence: None)
  Receive Date: 20111206
  Receipt Date: 20111129
  Transmission Date: 20120403
  Serious: Yes (Other)
  Sender: FDA-Public Use
  Company Number: JP-CELGENEUS-TAJPN-10-0755

PATIENT
  Sex: Female
  Weight: 44 kg

DRUGS (13)
  1. ABRAXANE [Suspect]
     Dosage: 308 MILLIGRAM
     Route: 041
     Dates: start: 20101201
  2. ABRAXANE [Suspect]
     Dosage: 308 MILLIGRAM
     Route: 041
     Dates: start: 20110104
  3. GRAN [Concomitant]
     Dosage: 150 MICROGRAM
     Route: 065
     Dates: start: 20101019
  4. GRAN [Concomitant]
     Dosage: 150 MICROGRAM
     Route: 065
     Dates: start: 20101109
  5. SEFIROM [Concomitant]
     Dosage: 1 GRAM
     Route: 065
  6. CYCLOPHOSPHAMIDE [Concomitant]
     Route: 065
  7. ABRAXANE [Suspect]
     Indication: BREAST CANCER METASTATIC
     Dosage: 308 MILLIGRAM
     Route: 041
     Dates: start: 20101012, end: 20101012
  8. ABRAXANE [Suspect]
     Dosage: 364 MILLIGRAM
     Route: 041
     Dates: start: 20110127
  9. LEUPROLIDE ACETATE [Concomitant]
     Dosage: 11.25 MILLIGRAM
     Route: 058
     Dates: start: 20080319, end: 20101102
  10. FLUOROURACIL [Concomitant]
     Route: 065
  11. EPIRUBICIN HYDROCHLORIDE [Concomitant]
     Route: 065
  12. ABRAXANE [Suspect]
     Dosage: 308 MILLIGRAM
     Route: 041
     Dates: start: 20101102, end: 20101102
  13. ABRAXANE [Suspect]
     Dosage: 308 MILLIGRAM
     Route: 041
     Dates: start: 20101125, end: 20101125

REACTIONS (3)
  - C-REACTIVE PROTEIN INCREASED [None]
  - WHITE BLOOD CELL COUNT DECREASED [None]
  - NEUTROPHIL COUNT DECREASED [None]
